FAERS Safety Report 22166365 (Version 1)
Quarter: 2023Q1

REPORT INFORMATION
  Report Type: Spontaneous
  Country: US (occurrence: None)
  Receive Date: 20230331
  Receipt Date: 20230331
  Transmission Date: 20230418
  Serious: Yes (Other)
  Sender: FDA-Public Use
  Company Number: None

PATIENT
  Age: 44 Year
  Sex: 0

DRUGS (10)
  1. VELTASSA [Suspect]
     Active Substance: PATIROMER
     Indication: Heart transplant
     Dosage: FREQUENCY : DAILY;?
     Route: 048
     Dates: start: 20201222
  2. ENVARSUS XR [Concomitant]
     Active Substance: TACROLIMUS
  3. GABAPENTIN [Concomitant]
     Active Substance: GABAPENTIN
  4. MAGNESIUM OXIDE [Concomitant]
     Active Substance: MAGNESIUM OXIDE
  5. CARVEDILOL [Concomitant]
     Active Substance: CARVEDILOL
  6. NOVOLOG [Concomitant]
     Active Substance: INSULIN ASPART
  7. allopruinol [Concomitant]
  8. LEVOTHYROXINE [Concomitant]
     Active Substance: LEVOTHYROXINE
  9. TRESIBA [Concomitant]
     Active Substance: INSULIN DEGLUDEC
  10. VITAMIN D [Concomitant]
     Active Substance: VITAMIN D NOS

REACTIONS (2)
  - Blood potassium increased [None]
  - Therapy cessation [None]

NARRATIVE: CASE EVENT DATE: 20230331
